FAERS Safety Report 6065249-3 (Version None)
Quarter: 2009Q1

REPORT INFORMATION
  Report Type: 
  Country: None (occurrence: None)
  Receive Date: 20090204
  Receipt Date: 20090127
  Transmission Date: 20090719
  Serious: Yes (Hospitalization, Other)
  Sender: FDA-Public Use
  Company Number: PHEH2005US09568

PATIENT
  Sex: Female
  Weight: 61.224 kg

DRUGS (10)
  1. ESTRADERM [Suspect]
     Dosage: 0.05 MG, 2X/WK
     Route: 062
     Dates: start: 19950901, end: 19951101
  2. PREMPRO [Suspect]
     Indication: MENOPAUSAL SYMPTOMS
     Dosage: 625/2.5 MG
     Dates: start: 19960601, end: 19960601
  3. PREMARIN [Suspect]
     Dosage: 0.625 MG, UNK
     Route: 048
     Dates: start: 19921001, end: 19970701
  4. PROVERA [Suspect]
     Dosage: 5/2.5 MG DAY 1-14
     Route: 048
     Dates: start: 19921001, end: 19970701
  5. OGEN [Suspect]
     Route: 067
     Dates: start: 19920601, end: 19930401
  6. PREMARIN [Suspect]
  7. XANAX [Concomitant]
  8. EVISTA [Concomitant]
     Dosage: UNK
     Dates: start: 19990801, end: 20010401
  9. PROZAC [Concomitant]
     Dosage: 40 MG, UNK
  10. MULTIVITAMINS, COMBINATIONS [Concomitant]

REACTIONS (40)
  - ABDOMINAL PAIN [None]
  - ANXIETY [None]
  - APPLICATION SITE REACTION [None]
  - ARTHRITIS [None]
  - ASPIRATION BIOPSY [None]
  - BONE GIANT CELL TUMOUR [None]
  - BREAST CANCER IN SITU [None]
  - BREAST CANCER RECURRENT [None]
  - BREAST CANCER STAGE I [None]
  - BREAST CANCER STAGE III [None]
  - BREAST FIBROSIS [None]
  - BREAST MASS [None]
  - BREAST NECROSIS [None]
  - BREAST PROSTHESIS IMPLANTATION [None]
  - BREAST RECONSTRUCTION [None]
  - CHEMOTHERAPY [None]
  - CONFUSIONAL STATE [None]
  - CYST ASPIRATION [None]
  - DEPRESSION [None]
  - DYSPHAGIA [None]
  - EXCESSIVE GRANULATION TISSUE [None]
  - FIBROCYSTIC BREAST DISEASE [None]
  - HALLUCINATION [None]
  - INJURY [None]
  - MALIGNANT TUMOUR EXCISION [None]
  - MAMMOGRAM [None]
  - MASTECTOMY [None]
  - MEDICAL DEVICE REMOVAL [None]
  - METASTASIS [None]
  - MUSCLE ATROPHY [None]
  - MUSCLE FLAP OPERATION [None]
  - OESTROGEN RECEPTOR ASSAY NEGATIVE [None]
  - OESTROGEN RECEPTOR ASSAY POSITIVE [None]
  - OSTEOPOROSIS [None]
  - OVARIAN CYST [None]
  - PAIN [None]
  - PHYSICAL DISABILITY [None]
  - PROGESTERONE RECEPTOR ASSAY NEGATIVE [None]
  - REFLUX OESOPHAGITIS [None]
  - RENAL CYST [None]
